FAERS Safety Report 8543693-X (Version None)
Quarter: 2012Q3

REPORT INFORMATION
  Report Type: 
  Country: None (occurrence: None)
  Receive Date: 20120727
  Receipt Date: 20120718
  Transmission Date: 20120928
  Serious: No
  Sender: FDA-Public Use
  Company Number: US-ENDO PHARMACEUTICALS INC.-OPIR20120106

PATIENT
  Sex: Female

DRUGS (1)
  1. OPANA [Suspect]
     Indication: PAIN
     Route: 048
     Dates: start: 20120601, end: 20120716

REACTIONS (1)
  - DRUG INEFFECTIVE [None]
